FAERS Safety Report 8594978-2 (Version None)
Quarter: 2012Q3

REPORT INFORMATION
  Report Type: 
  Country: None (occurrence: None)
  Receive Date: 20120806
  Receipt Date: 20120806
  Transmission Date: 20120928
  Serious: Yes (Hospitalization)
  Sender: FDA-Public Use
  Company Number: None

PATIENT
  Sex: Male
  Weight: 79.3795 kg

DRUGS (1)
  1. LEVOFLOXACIN [Suspect]
     Indication: PNEUMONIA
     Dosage: 500 MG
     Dates: start: 20120619, end: 20120625

REACTIONS (5)
  - ARTHROPATHY [None]
  - SWELLING [None]
  - JOINT RANGE OF MOTION DECREASED [None]
  - URTICARIA [None]
  - PAIN [None]
